FAERS Safety Report 6082254-1 (Version None)
Quarter: 2009Q1

REPORT INFORMATION
  Report Type: 
  Country: None (occurrence: None)
  Receive Date: 20090126
  Receipt Date: 20080929
  Transmission Date: 20090719
  Serious: Yes (Other)
  Sender: FDA-Public Use
  Company Number: 278869

PATIENT
  Age: 48 Year
  Sex: Female

DRUGS (4)
  1. LEVEMIR [Suspect]
     Indication: TYPE 1 DIABETES MELLITUS
     Dosage: SUBCUTANEOUS : SUBCUTANEOUS
     Route: 058
     Dates: start: 20080501, end: 20080501
  2. LEVEMIR [Suspect]
     Indication: TYPE 1 DIABETES MELLITUS
     Dosage: SUBCUTANEOUS : SUBCUTANEOUS
     Route: 058
     Dates: start: 20080702, end: 20080704
  3. NOVOLOG FLEX PEN (INSULIN ASPART) SOLUTION FOR INJECTION [Concomitant]
  4. LANTUS [Concomitant]

REACTIONS (2)
  - HYPOGLYCAEMIA [None]
  - LOSS OF CONSCIOUSNESS [None]
